FAERS Safety Report 11276496 (Version 1)
Quarter: 2015Q3

REPORT INFORMATION
  Report Type: Other
  Country: BR (occurrence: BR)
  Receive Date: 20150716
  Receipt Date: 20150716
  Transmission Date: 20151125
  Serious: Yes (Other)
  Sender: FDA-Public Use
  Company Number: BR-SHIRE-BR201507666

PATIENT
  Age: 23 Year
  Sex: Male

DRUGS (1)
  1. VENVANSE [Suspect]
     Active Substance: LISDEXAMFETAMINE DIMESYLATE
     Indication: ATTENTION DEFICIT/HYPERACTIVITY DISORDER
     Dosage: 50 MG, 1X/DAY:QD
     Route: 048

REACTIONS (6)
  - Agitation [Unknown]
  - Bipolar disorder [Unknown]
  - Dyslexia [Unknown]
  - Sleep disorder [Unknown]
  - Anxiety [Unknown]
  - Drug ineffective [Recovered/Resolved]
